FAERS Safety Report 16430373 (Version 2)
Quarter: 2019Q3

REPORT INFORMATION
  Report Type: Spontaneous
  Country: JP (occurrence: JP)
  Receive Date: 20190614
  Receipt Date: 20190823
  Transmission Date: 20191004
  Serious: Yes (Hospitalization, Other)
  Sender: FDA-Public Use
  Company Number: JP-ROCHE-2337626

PATIENT
  Age: 90 Year
  Sex: Female

DRUGS (3)
  1. BONVIVA [Suspect]
     Active Substance: IBANDRONATE SODIUM
     Indication: OSTEOPOROSIS
     Route: 048
     Dates: start: 20181205
  2. CELECOX [Concomitant]
     Active Substance: CELECOXIB
     Indication: OSTEOPOROSIS
     Route: 065
     Dates: start: 20180630
  3. EDIROL [Suspect]
     Active Substance: ELDECALCITOL
     Indication: OSTEOPOROSIS
     Route: 048
     Dates: start: 20181205, end: 20190513

REACTIONS (3)
  - Hypercalcaemia [Recovered/Resolved]
  - Renal impairment [Unknown]
  - Altered state of consciousness [Unknown]

NARRATIVE: CASE EVENT DATE: 20190513
